FAERS Safety Report 10468488 (Version 1)
Quarter: 2014Q3

REPORT INFORMATION
  Report Type: Spontaneous
  Country: US (occurrence: US)
  Receive Date: 20140922
  Receipt Date: 20140922
  Transmission Date: 20150326
  Serious: No
  Sender: FDA-Public Use
  Company Number: US-ALLERGAN-1311637US

PATIENT
  Age: 58 Year
  Sex: Female

DRUGS (1)
  1. LASTACAFT [Suspect]
     Active Substance: ALCAFTADINE
     Indication: HYPERSENSITIVITY
     Dosage: 2 GTT, UNK
     Route: 047
     Dates: start: 20130720, end: 20130731

REACTIONS (5)
  - Eye irritation [Unknown]
  - Eye pruritus [Recovering/Resolving]
  - Scleral hyperaemia [Recovered/Resolved]
  - Conjunctivitis [Not Recovered/Not Resolved]
  - Eye discharge [Recovering/Resolving]
